FAERS Safety Report 8257564-X (Version None)
Quarter: 2012Q1

REPORT INFORMATION
  Report Type: 
  Country: None (occurrence: None)
  Receive Date: 20120330
  Receipt Date: 20120330
  Transmission Date: 20120608
  Serious: Yes (Disabling, Other)
  Sender: FDA-Public Use
  Company Number: None

PATIENT
  Sex: Female
  Weight: 81.6475 kg

DRUGS (2)
  1. CYMBALTA [Suspect]
     Indication: INTERVERTEBRAL DISC DEGENERATION
     Dosage: 60 MG 1X DAY DAILY
     Dates: start: 20111011, end: 20111228
  2. CYMBALTA [Suspect]
     Indication: DEPRESSION
     Dosage: 60 MG 1X DAY DAILY
     Dates: start: 20111011, end: 20111228

REACTIONS (2)
  - STEVENS-JOHNSON SYNDROME [None]
  - COMPLEX REGIONAL PAIN SYNDROME [None]
